FAERS Safety Report 7983607-4 (Version None)
Quarter: 2011Q4

REPORT INFORMATION
  Report Type: 
  Country: None (occurrence: None)
  Receive Date: 20111215
  Receipt Date: 20111208
  Transmission Date: 20120403
  Serious: Yes (Hospitalization)
  Sender: FDA-Public Use
  Company Number: PHHY2011NL107422

PATIENT
  Sex: Female

DRUGS (2)
  1. ZOMETA [Suspect]
     Indication: BREAST CANCER METASTATIC
     Dosage: 4 MG/ 5 ML ONCE PER 28 DAYS
     Dates: start: 20111024
  2. ZOMETA [Suspect]
     Dosage: 4 MG/ 5 ML EVERY 3 WEEKS

REACTIONS (2)
  - CHEST DISCOMFORT [None]
  - LUNG NEOPLASM [None]
